FAERS Safety Report 15658301 (Version 3)
Quarter: 2018Q4

REPORT INFORMATION
  Report Type: Spontaneous
  Country: US (occurrence: US)
  Receive Date: 20181126
  Receipt Date: 20181207
  Transmission Date: 20190205
  Serious: No
  Sender: FDA-Public Use
  Company Number: US-PFIZER INC-2018485086

PATIENT
  Age: 64 Year
  Sex: Female
  Weight: 61 kg

DRUGS (1)
  1. DIFLUCAN [Suspect]
     Active Substance: FLUCONAZOLE
     Dosage: 150 MG, UNK

REACTIONS (6)
  - Drug ineffective [Unknown]
  - Intentional product misuse [Unknown]
  - Hypersensitivity [Unknown]
  - Infection [Unknown]
  - Pyrexia [Unknown]
  - Candida infection [Unknown]
